FAERS Safety Report 8929432 (Version 1)
Quarter: 2012Q4

REPORT INFORMATION
  Report Type: Spontaneous
  Country: US (occurrence: None)
  Receive Date: 20121120
  Receipt Date: 20121120
  Transmission Date: 20130627
  Serious: Yes (Other)
  Sender: FDA-Public Use
  Company Number: FK201203339

PATIENT
  Age: 72 Year
  Sex: Male

DRUGS (2)
  1. HEPARIN (MANUFACTURER UNKNOWN)(HEPARIN)(HEPARIN) [Suspect]
     Indication: PRODUCT USED FOR UNKNOWN INDICATION
     Dosage: Unknown,  Unknown,  Unknown
  2. WARFARIN (WARFARIN) [Concomitant]

REACTIONS (5)
  - Thrombotic thrombocytopenic purpura [None]
  - Heparin-induced thrombocytopenia [None]
  - Renal impairment [None]
  - Post procedural complication [None]
  - Aortic thrombosis [None]
